FAERS Safety Report 13251879 (Version 1)
Quarter: 2017Q1

REPORT INFORMATION
  Report Type: Spontaneous
  Country: US (occurrence: US)
  Receive Date: 20170220
  Receipt Date: 20170220
  Transmission Date: 20170428
  Serious: No
  Sender: FDA-Public Use
  Company Number: US-TAKEDA-2017TUS003358

PATIENT
  Sex: Female

DRUGS (2)
  1. OSENI [Suspect]
     Active Substance: ALOGLIPTIN BENZOATE\PIOGLITAZONE HYDROCHLORIDE
     Indication: DIABETES MELLITUS
     Dosage: 25/30MG, UNK
     Route: 065
  2. OSENI [Suspect]
     Active Substance: ALOGLIPTIN BENZOATE\PIOGLITAZONE HYDROCHLORIDE
     Dosage: 25/45MG, UNK
     Route: 065

REACTIONS (3)
  - Product physical issue [Unknown]
  - Pain in extremity [Unknown]
  - Skin exfoliation [Unknown]
